FAERS Safety Report 8109802-1 (Version None)
Quarter: 2012Q1

REPORT INFORMATION
  Report Type: 
  Country: None (occurrence: None)
  Receive Date: 20120202
  Receipt Date: 20120120
  Transmission Date: 20120608
  Serious: Yes (Hospitalization)
  Sender: FDA-Public Use
  Company Number: US-MYLANLABS-2012S1001654

PATIENT
  Age: 65 Year
  Sex: Male

DRUGS (4)
  1. ALBUTEROL SULFATE AUTOHALER [Concomitant]
     Indication: EMPHYSEMA
     Dosage: EVERY 6 HOURS
     Route: 055
  2. CIPROFLOXACIN [Suspect]
     Indication: URINARY TRACT INFECTION
     Route: 065
  3. COMBIVENT [Concomitant]
     Indication: EMPHYSEMA
     Dosage: EVERY 6 HOURS
     Route: 055
  4. CITALOPRAM HYDROBROMIDE [Interacting]
     Indication: DEPRESSION
     Dosage: 60MG DAILY
     Route: 065

REACTIONS (2)
  - TORSADE DE POINTES [None]
  - DRUG INTERACTION [None]
